FAERS Safety Report 10157939 (Version 3)
Quarter: 2015Q2

REPORT INFORMATION
  Report Type: Report from Study
  Country: US (occurrence: US)
  Receive Date: 20140507
  Receipt Date: 20150513
  Transmission Date: 20150821
  Serious: Yes (Hospitalization, Other)
  Sender: FDA-Public Use
  Company Number: PHEH2014US008945

PATIENT
  Age: 57 Year
  Sex: Male

DRUGS (74)
  1. TOBI [Suspect]
     Active Substance: TOBRAMYCIN
     Indication: PNEUMONIA
     Dosage: 300 MG, BID
     Route: 055
  2. DUONEB [Concomitant]
     Active Substance: ALBUTEROL SULFATE\IPRATROPIUM BROMIDE
     Indication: DYSPNOEA
  3. PROZAC [Concomitant]
     Active Substance: FLUOXETINE HYDROCHLORIDE
     Indication: PNEUMONIA
     Dosage: 10 MG, UNK
     Route: 048
  4. ADVAIR DISKUS [Concomitant]
     Active Substance: FLUTICASONE PROPIONATE\SALMETEROL XINAFOATE
     Indication: OBSTRUCTIVE AIRWAYS DISORDER
  5. LORTAB [Concomitant]
     Active Substance: ACETAMINOPHEN\HYDROCODONE BITARTRATE
     Indication: OBSTRUCTIVE AIRWAYS DISORDER
  6. OXYCODONE [Concomitant]
     Active Substance: OXYCODONE
     Indication: BRONCHITIS
  7. POTASSIUM [Concomitant]
     Active Substance: POTASSIUM
     Indication: OBSTRUCTIVE AIRWAYS DISORDER
  8. SELSUN [Concomitant]
     Active Substance: SELENIUM SULFIDE
     Indication: BRONCHITIS
  9. COMBIVENT [Concomitant]
     Active Substance: ALBUTEROL SULFATE\IPRATROPIUM BROMIDE
     Indication: PRODUCT USED FOR UNKNOWN INDICATION
     Dosage: UNK UKN, UNK
     Route: 065
  10. HUMALOG [Concomitant]
     Active Substance: INSULIN LISPRO
     Indication: PRODUCT USED FOR UNKNOWN INDICATION
     Dosage: 0 TO 12 UNITS UNDER THE SKIN 4 TIMESS DAILY (BEFORE MEALS AND NIGHTLY)
     Route: 065
  11. PREDNISONE. [Suspect]
     Active Substance: PREDNISONE
     Indication: PNEUMONIA
     Dosage: 10 MG, QD
     Route: 048
  12. ZITHROMAX [Concomitant]
     Active Substance: AZITHROMYCIN DIHYDRATE
     Indication: PNEUMONIA
     Dosage: 250 MG, 3 TIMES A WEEK (30 TABLET)
     Route: 048
  13. ZITHROMAX [Concomitant]
     Active Substance: AZITHROMYCIN DIHYDRATE
     Indication: OBSTRUCTIVE AIRWAYS DISORDER
  14. HEPARIN [Concomitant]
     Active Substance: HEPARIN SODIUM
     Indication: OBSTRUCTIVE AIRWAYS DISORDER
  15. PRILOSEC [Concomitant]
     Active Substance: OMEPRAZOLE MAGNESIUM
     Indication: OBSTRUCTIVE AIRWAYS DISORDER
  16. SELSUN [Concomitant]
     Active Substance: SELENIUM SULFIDE
     Indication: PNEUMONIA
     Route: 065
  17. SELSUN [Concomitant]
     Active Substance: SELENIUM SULFIDE
     Indication: OBSTRUCTIVE AIRWAYS DISORDER
  18. PROLASTIN [Concomitant]
     Active Substance: .ALPHA.1-PROTEINASE INHIBITOR HUMAN
     Indication: PNEUMONIA
     Dosage: 60 MG PER KG, ONCE WEEK
     Route: 042
  19. PROLASTIN [Concomitant]
     Active Substance: .ALPHA.1-PROTEINASE INHIBITOR HUMAN
     Indication: BRONCHITIS
  20. VALIUM [Concomitant]
     Active Substance: DIAZEPAM
     Indication: PNEUMONIA
     Dosage: 10 MG, TID (1 TABLETS BY MOUTH 3 TIMES DAILY) (30 TABLET)
     Route: 048
  21. VALIUM [Concomitant]
     Active Substance: DIAZEPAM
     Indication: BRONCHITIS
  22. BENADRYL [Concomitant]
     Active Substance: DIPHENHYDRAMINE HYDROCHLORIDE
     Indication: PRURITUS
  23. LORTAB [Concomitant]
     Active Substance: ACETAMINOPHEN\HYDROCODONE BITARTRATE
     Indication: BRONCHITIS
  24. MORPHINE [Concomitant]
     Active Substance: MORPHINE
     Indication: DYSPNOEA
  25. OXYGEN. [Concomitant]
     Active Substance: OXYGEN
     Indication: BRONCHITIS
  26. POTASSIUM [Concomitant]
     Active Substance: POTASSIUM
     Indication: PNEUMONIA
     Dosage: 20 DF, QD
     Route: 048
  27. ROXANOL [Concomitant]
     Active Substance: MORPHINE SULFATE
     Indication: DYSPNOEA
     Dosage: 1 ML, EVERY 6 HOURS (1 ML EVERY 1 HOURS AS NEEDED)
     Route: 065
  28. HYDROCODONE [Concomitant]
     Active Substance: HYDROCODONE
     Indication: PRODUCT USED FOR UNKNOWN INDICATION
     Dosage: UNK UKN, UNK
     Route: 065
  29. PREDNISONE. [Suspect]
     Active Substance: PREDNISONE
     Indication: OBSTRUCTIVE AIRWAYS DISORDER
  30. ADVAIR DISKUS [Concomitant]
     Active Substance: FLUTICASONE PROPIONATE\SALMETEROL XINAFOATE
     Indication: PNEUMONIA
     Dosage: 500 UG, BID (1 PUFF INTO THE LUNGS 2 TIMES DAILY)
     Route: 055
  31. LASIX [Concomitant]
     Active Substance: FUROSEMIDE
     Indication: BRONCHITIS
  32. HEPARIN [Concomitant]
     Active Substance: HEPARIN SODIUM
     Indication: PNEUMONIA
     Dosage: 10 ML, PRN
     Route: 065
  33. TRAZODONE [Concomitant]
     Active Substance: TRAZODONE HYDROCHLORIDE
     Indication: OBSTRUCTIVE AIRWAYS DISORDER
  34. TOBI [Suspect]
     Active Substance: TOBRAMYCIN
     Indication: OBSTRUCTIVE AIRWAYS DISORDER
  35. PROLASTIN [Concomitant]
     Active Substance: .ALPHA.1-PROTEINASE INHIBITOR HUMAN
     Indication: OBSTRUCTIVE AIRWAYS DISORDER
  36. ZITHROMAX [Concomitant]
     Active Substance: AZITHROMYCIN DIHYDRATE
     Indication: BRONCHITIS
  37. BENADRYL [Concomitant]
     Active Substance: DIPHENHYDRAMINE HYDROCHLORIDE
     Indication: OBSTRUCTIVE AIRWAYS DISORDER
  38. ADVAIR DISKUS [Concomitant]
     Active Substance: FLUTICASONE PROPIONATE\SALMETEROL XINAFOATE
     Indication: BRONCHITIS
  39. LASIX [Concomitant]
     Active Substance: FUROSEMIDE
     Indication: OBSTRUCTIVE AIRWAYS DISORDER
  40. MORPHINE [Concomitant]
     Active Substance: MORPHINE
     Indication: BRONCHITIS
     Dosage: 2 MG, X2
     Route: 065
  41. MORPHINE [Concomitant]
     Active Substance: MORPHINE
     Indication: OBSTRUCTIVE AIRWAYS DISORDER
  42. SENOKOT [Concomitant]
     Active Substance: SENNOSIDES
     Indication: PRODUCT USED FOR UNKNOWN INDICATION
     Dosage: 1 TABLETS BY MOUTH 4 TIMES DAILY
     Route: 065
  43. DUONEB [Concomitant]
     Active Substance: ALBUTEROL SULFATE\IPRATROPIUM BROMIDE
     Indication: OBSTRUCTIVE AIRWAYS DISORDER
  44. VALIUM [Concomitant]
     Active Substance: DIAZEPAM
     Indication: OBSTRUCTIVE AIRWAYS DISORDER
  45. BENADRYL [Concomitant]
     Active Substance: DIPHENHYDRAMINE HYDROCHLORIDE
     Indication: BRONCHITIS
  46. PROZAC [Concomitant]
     Active Substance: FLUOXETINE HYDROCHLORIDE
     Indication: OBSTRUCTIVE AIRWAYS DISORDER
  47. GLUCOPHAGE [Concomitant]
     Active Substance: METFORMIN HYDROCHLORIDE
     Indication: PNEUMONIA
     Dosage: 500 MG, QD
     Route: 048
  48. GLUCOPHAGE [Concomitant]
     Active Substance: METFORMIN HYDROCHLORIDE
     Indication: OBSTRUCTIVE AIRWAYS DISORDER
  49. OXYCODONE [Concomitant]
     Active Substance: OXYCODONE
     Indication: PNEUMONIA
     Dosage: 5 MG, BID
     Route: 048
  50. OXYCODONE [Concomitant]
     Active Substance: OXYCODONE
     Indication: OBSTRUCTIVE AIRWAYS DISORDER
  51. OXYGEN. [Concomitant]
     Active Substance: OXYGEN
     Indication: PNEUMONIA
     Route: 065
  52. POTASSIUM [Concomitant]
     Active Substance: POTASSIUM
     Indication: BRONCHITIS
  53. INSULIN [Concomitant]
     Active Substance: INSULIN NOS
     Indication: PRODUCT USED FOR UNKNOWN INDICATION
     Dosage: UNK UKN, UNK
     Route: 065
  54. SOLU-MEDROL [Concomitant]
     Active Substance: METHYLPREDNISOLONE SODIUM SUCCINATE
     Indication: PRODUCT USED FOR UNKNOWN INDICATION
     Dosage: 125 MG, UNK
     Route: 042
  55. DUONEB [Concomitant]
     Active Substance: ALBUTEROL SULFATE\IPRATROPIUM BROMIDE
     Indication: PNEUMONIA
     Dosage: 2.5 MG, EVERY 4 TO 6 HOURS
     Route: 055
  56. DUONEB [Concomitant]
     Active Substance: ALBUTEROL SULFATE\IPRATROPIUM BROMIDE
     Indication: BRONCHITIS
  57. BENADRYL [Concomitant]
     Active Substance: DIPHENHYDRAMINE HYDROCHLORIDE
     Indication: PNEUMONIA
     Dosage: 25 MG, 30 MINUTES PRIOR TO PROLASTIN AND AS NEEDED FOR ITCHING
     Route: 048
  58. HEPARIN [Concomitant]
     Active Substance: HEPARIN SODIUM
     Indication: BRONCHITIS
     Dosage: 5 ML,
     Route: 065
  59. GLUCOPHAGE [Concomitant]
     Active Substance: METFORMIN HYDROCHLORIDE
     Indication: BRONCHITIS
  60. PRILOSEC [Concomitant]
     Active Substance: OMEPRAZOLE MAGNESIUM
     Indication: BRONCHITIS
  61. OXYGEN. [Concomitant]
     Active Substance: OXYGEN
     Indication: OBSTRUCTIVE AIRWAYS DISORDER
  62. TRAZODONE [Concomitant]
     Active Substance: TRAZODONE HYDROCHLORIDE
     Indication: BRONCHITIS
  63. K-DUR [Concomitant]
     Active Substance: POTASSIUM CHLORIDE
     Indication: PRODUCT USED FOR UNKNOWN INDICATION
     Dosage: 30 MEQ, MOUTH DAILY
     Route: 065
  64. TRAZODONE HYDROCHLORIDE. [Concomitant]
     Active Substance: TRAZODONE HYDROCHLORIDE
     Indication: PRODUCT USED FOR UNKNOWN INDICATION
     Dosage: 200 MG, BY MOUTH EVERY EVENING
     Route: 065
  65. TOBI [Suspect]
     Active Substance: TOBRAMYCIN
     Indication: BRONCHITIS
  66. PREDNISONE. [Suspect]
     Active Substance: PREDNISONE
     Indication: BRONCHITIS
  67. PROZAC [Concomitant]
     Active Substance: FLUOXETINE HYDROCHLORIDE
     Indication: BRONCHITIS
  68. LASIX [Concomitant]
     Active Substance: FUROSEMIDE
     Indication: PNEUMONIA
     Dosage: 40 MG, BID
     Route: 048
  69. LORTAB [Concomitant]
     Active Substance: ACETAMINOPHEN\HYDROCODONE BITARTRATE
     Indication: PNEUMONIA
     Dosage: 500 MG, QID (1 TABLET BY MOUTH 4 TIMES DAILY)
     Route: 048
  70. MORPHINE [Concomitant]
     Active Substance: MORPHINE
     Indication: PNEUMONIA
     Dosage: 20 MG, Q6H (MAY ALSO TAKE 1 ML EVERY 1 HOUR AS NEEDED FOR INCREASED SOB)
     Route: 065
  71. PRILOSEC [Concomitant]
     Active Substance: OMEPRAZOLE MAGNESIUM
     Indication: PNEUMONIA
     Dosage: 20 MG, QD (ONE CAPSULE BY MOUTH DAILY)
     Route: 048
  72. TRAZODONE [Concomitant]
     Active Substance: TRAZODONE HYDROCHLORIDE
     Indication: PNEUMONIA
     Dosage: 150 MG, BID (EVERY EVENING 2 TIMES A NIGHT)
     Route: 048
  73. DURAGESIC [Concomitant]
     Active Substance: FENTANYL
     Indication: PRODUCT USED FOR UNKNOWN INDICATION
     Dosage: 1 PATCH ONTO THE SKIN EVERY 72 HOURS
     Route: 065
  74. SORBITOL. [Concomitant]
     Active Substance: SORBITOL
     Indication: PRODUCT USED FOR UNKNOWN INDICATION
     Dosage: 30 ML, BY MOUTH DAILY
     Route: 065

REACTIONS (70)
  - Bacterial disease carrier [Unknown]
  - Pulmonary artery dilatation [Unknown]
  - Capillary disorder [Unknown]
  - Abdominal distension [Unknown]
  - Pancreatic disorder [Unknown]
  - Drug abuse [Unknown]
  - Hypoacusis [Unknown]
  - Glomerular filtration rate decreased [Unknown]
  - Deformity [Unknown]
  - Pulmonary function test abnormal [Unknown]
  - Wheezing [Unknown]
  - Carbon monoxide diffusing capacity decreased [Unknown]
  - Acute respiratory failure [Unknown]
  - Diastolic dysfunction [Unknown]
  - Pulmonary embolism [Unknown]
  - Pulmonary mass [Recovered/Resolved]
  - Interstitial lung disease [Unknown]
  - Cardiomegaly [Unknown]
  - Anaemia [Unknown]
  - Dry skin [Unknown]
  - Blood pressure decreased [Unknown]
  - Depression [Unknown]
  - Type 2 diabetes mellitus [Unknown]
  - Lung disorder [Unknown]
  - Productive cough [Unknown]
  - Lung infiltration [Unknown]
  - Bladder cancer [Unknown]
  - Arteriosclerosis [Unknown]
  - Skin warm [Unknown]
  - Sleep apnoea syndrome [Unknown]
  - Bacteraemia [Unknown]
  - Chronic obstructive pulmonary disease [Unknown]
  - Emphysema [Unknown]
  - Pulmonary fibrosis [Unknown]
  - Fluid overload [Unknown]
  - Intervertebral disc degeneration [Unknown]
  - Urine abnormality [Unknown]
  - Constipation [Unknown]
  - Pseudomonas infection [Unknown]
  - Breath sounds abnormal [Unknown]
  - Sputum discoloured [Unknown]
  - Rhonchi [Unknown]
  - Dyspnoea [Unknown]
  - Bronchiectasis [Unknown]
  - Sepsis [Unknown]
  - Blood creatinine increased [Unknown]
  - Pulmonary oedema [Recovering/Resolving]
  - Sinus tachycardia [Unknown]
  - Heart rate increased [Unknown]
  - Diabetes mellitus [Unknown]
  - Drug tolerance [Not Recovered/Not Resolved]
  - Anxiety [Unknown]
  - Post-traumatic stress disorder [Unknown]
  - Large intestine polyp [Unknown]
  - Pulmonary arterial hypertension [Unknown]
  - Respiratory distress [Unknown]
  - Fatigue [Unknown]
  - Alpha-1 anti-trypsin deficiency [Unknown]
  - Dermatitis bullous [Unknown]
  - Encephalopathy [Unknown]
  - Oedema [Recovering/Resolving]
  - Spinal osteoarthritis [Unknown]
  - Hyperhidrosis [Unknown]
  - Pyrexia [Unknown]
  - Blood gases abnormal [Unknown]
  - Systemic inflammatory response syndrome [Unknown]
  - Chronic kidney disease [Unknown]
  - Bronchitis [Unknown]
  - Back pain [Unknown]
  - Pain [Unknown]

NARRATIVE: CASE EVENT DATE: 201006
